FAERS Safety Report 15603680 (Version 1)
Quarter: 2018Q4

REPORT INFORMATION
  Report Type: Spontaneous
  Country: US (occurrence: US)
  Receive Date: 20181109
  Receipt Date: 20181109
  Transmission Date: 20190205
  Serious: Yes (Other)
  Sender: FDA-Public Use
  Company Number: US-BAYER-2018-204819

PATIENT
  Age: 48 Year
  Sex: Male

DRUGS (1)
  1. BETASERON [Suspect]
     Active Substance: INTERFERON BETA-1B
     Indication: MULTIPLE SCLEROSIS
     Dosage: 0.3 MG, UNK
     Route: 058
     Dates: start: 2016

REACTIONS (6)
  - Blindness [None]
  - Myocardial infarction [None]
  - Hypoaesthesia [None]
  - Pain [None]
  - Fatigue [None]
  - Multiple sclerosis relapse [None]

NARRATIVE: CASE EVENT DATE: 2017
